FAERS Safety Report 9546564 (Version 2)
Quarter: 2013Q3

REPORT INFORMATION
  Report Type: Spontaneous
  Country: US (occurrence: US)
  Receive Date: 20130923
  Receipt Date: 20130927
  Transmission Date: 20140515
  Serious: No
  Sender: FDA-Public Use
  Company Number: US-009507513-1309USA007840

PATIENT
  Age: 78 Year
  Sex: Male

DRUGS (2)
  1. JANUVIA [Suspect]
     Indication: BLOOD GLUCOSE
     Dosage: 50 MG, QD
     Route: 048
     Dates: start: 20130913, end: 20130916
  2. GLIMEPIRIDE [Concomitant]
     Dosage: TWO 4 MG TABLETS DAILY
     Route: 048

REACTIONS (1)
  - Blood glucose increased [Unknown]
